FAERS Safety Report 16295577 (Version 3)
Quarter: 2020Q1

REPORT INFORMATION
  Report Type: Spontaneous
  Country: US (occurrence: US)
  Receive Date: 20190509
  Receipt Date: 20200107
  Transmission Date: 20200409
  Serious: No
  Sender: FDA-Public Use
  Company Number: US-SA-2019SA121288

PATIENT
  Age: 60 Year
  Sex: Male

DRUGS (2)
  1. DUPIXENT [Suspect]
     Active Substance: DUPILUMAB
     Indication: ECZEMA
     Dosage: 300 MG, QOW
     Route: 058
     Dates: start: 2019
  2. DUPIXENT [Suspect]
     Active Substance: DUPILUMAB
     Indication: DERMATITIS ATOPIC
     Dosage: UNK
     Dates: start: 20190111, end: 20190111

REACTIONS (10)
  - Asthenopia [Unknown]
  - Eye irritation [Recovering/Resolving]
  - Irritability [Unknown]
  - Product use issue [Unknown]
  - Feeling abnormal [Unknown]
  - Anxiety [Unknown]
  - Urticaria [Unknown]
  - Ocular hyperaemia [Recovering/Resolving]
  - Visual impairment [Unknown]
  - Dry eye [Recovering/Resolving]

NARRATIVE: CASE EVENT DATE: 2019
